FAERS Safety Report 17162153 (Version 2)
Quarter: 2020Q1

REPORT INFORMATION
  Report Type: Spontaneous
  Country: DE (occurrence: DE)
  Receive Date: 20191217
  Receipt Date: 20200110
  Transmission Date: 20200409
  Serious: Yes (Hospitalization, Other)
  Sender: FDA-Public Use
  Company Number: DE-TEVA-2019-DE-1150503

PATIENT
  Age: 58 Year
  Sex: Male
  Weight: 108 kg

DRUGS (4)
  1. CISPLATIN TEVA 1 MG/ML KONZENTRAT HERST. INFUSIONSL?SUNG [Suspect]
     Active Substance: CISPLATIN
     Indication: BILE DUCT CANCER
  2. SOLU DECORTIN MERCK [Concomitant]
  3. RANIC HEXAL [Concomitant]
  4. CISPLATIN TEVA 1 MG/ML KONZENTRAT HERST. INFUSIONSL?SUNG [Suspect]
     Active Substance: CISPLATIN
     Indication: HAEMATOLOGICAL MALIGNANCY
     Route: 042
     Dates: start: 20191204

REACTIONS (2)
  - Circulatory collapse [Recovered/Resolved]
  - Presyncope [Recovered/Resolved]

NARRATIVE: CASE EVENT DATE: 20191204
